FAERS Safety Report 9124055 (Version 4)
Quarter: 2013Q2

REPORT INFORMATION
  Report Type: Spontaneous
  Country: FR (occurrence: FR)
  Receive Date: 20130227
  Receipt Date: 20130613
  Transmission Date: 20140414
  Serious: Yes (Hospitalization, Other)
  Sender: FDA-Public Use
  Company Number: FR-JNJFOC-20130204261

PATIENT
  Age: 86 Year
  Sex: Male

DRUGS (4)
  1. ZYTIGA [Suspect]
     Indication: PROSTATE CANCER METASTATIC
     Dosage: 250 MG X 2 TABLETS
     Route: 048
     Dates: start: 20130105
  2. ZYTIGA [Suspect]
     Indication: PROSTATE CANCER METASTATIC
     Dosage: 250 MG X 2 TABLETS????DRUG STOPPED DURING 15 DAYS
     Route: 048
     Dates: start: 20121102, end: 20121117
  3. PRADAXA [Concomitant]
     Indication: ARRHYTHMIA
     Route: 048
  4. PREDNISONE [Concomitant]
     Route: 065

REACTIONS (7)
  - Cardiac failure [Not Recovered/Not Resolved]
  - Respiratory distress [Unknown]
  - Hypokalaemia [Not Recovered/Not Resolved]
  - Oedema peripheral [Recovering/Resolving]
  - Dyspnoea [Recovered/Resolved]
  - Hypomagnesaemia [Not Recovered/Not Resolved]
  - Off label use [Unknown]
